FAERS Safety Report 6370041-6 (Version None)
Quarter: 2009Q3

REPORT INFORMATION
  Report Type: 
  Country: None (occurrence: None)
  Receive Date: 20090923
  Receipt Date: 20071019
  Transmission Date: 20100115
  Serious: No
  Sender: FDA-Public Use
  Company Number: US-ASTRAZENECA-2006UW07546

PATIENT
  Age: 82 Month
  Sex: Male
  Weight: 45.4 kg

DRUGS (8)
  1. SEROQUEL [Suspect]
     Indication: OPPOSITIONAL DEFIANT DISORDER
     Dosage: 100 - 300 MG
     Route: 048
     Dates: start: 20040121
  2. SEROQUEL [Suspect]
     Indication: AUTISM
     Dosage: 100 - 300 MG
     Route: 048
     Dates: start: 20040121
  3. SEROQUEL [Suspect]
     Route: 048
     Dates: start: 20040101
  4. SEROQUEL [Suspect]
     Route: 048
     Dates: start: 20040101
  5. RITALIN [Concomitant]
     Dosage: 5 - 30 MG
     Dates: start: 20021118
  6. CLONIDINE [Concomitant]
     Indication: SLEEP DISORDER
     Dates: start: 20030211
  7. TRAZODONE [Concomitant]
     Indication: SLEEP DISORDER
     Dosage: 100 - 250 MG
     Dates: start: 20021118
  8. TRILEPTAL [Concomitant]
     Indication: AFFECTIVE DISORDER
     Dates: start: 20021118

REACTIONS (3)
  - DYSPNOEA [None]
  - OBESITY [None]
  - TYPE 2 DIABETES MELLITUS [None]
